FAERS Safety Report 15723113 (Version 2)
Quarter: 2022Q2

REPORT INFORMATION
  Report Type: Spontaneous
  Country: CA (occurrence: CA)
  Receive Date: 20181214
  Receipt Date: 20220503
  Transmission Date: 20220721
  Serious: Yes (Other)
  Sender: FDA-Public Use
  Company Number: CA-PFIZER INC-2018509986

PATIENT
  Age: 48 Year
  Sex: Female

DRUGS (2)
  1. XELJANZ XR [Interacting]
     Active Substance: TOFACITINIB CITRATE
     Indication: Rheumatoid arthritis
     Dosage: 11 MG, 3X/DAY
     Route: 048
     Dates: start: 20181204
  2. ARAVA [Interacting]
     Active Substance: LEFLUNOMIDE
     Dosage: 1 DF, UNKNOWN DOSE

REACTIONS (4)
  - Immunosuppression [Unknown]
  - Diarrhoea [Recovered/Resolved]
  - Drug interaction [Unknown]
  - Bowel movement irregularity [Unknown]
